FAERS Safety Report 4504153-6 (Version None)
Quarter: 2004Q4

REPORT INFORMATION
  Report Type: 
  Country: None (occurrence: None)
  Receive Date: 20041115
  Receipt Date: 20041205
  Transmission Date: 20050328
  Serious: Yes (Other)
  Sender: FDA-Public Use
  Company Number: US_0411107870

PATIENT
  Age: 56 Year
  Sex: Female

DRUGS (3)
  1. EVISTA [Suspect]
     Dates: start: 20020101
  2. FORTEO [Concomitant]
  3. FOSAMAX [Concomitant]

REACTIONS (3)
  - BREAST CANCER IN SITU [None]
  - BREAST MICROCALCIFICATION [None]
  - NECROSIS [None]
